FAERS Safety Report 19407930 (Version 1)
Quarter: 2021Q2

REPORT INFORMATION
  Report Type: Report from Study
  Country: CA (occurrence: CA)
  Receive Date: 20210612
  Receipt Date: 20210612
  Transmission Date: 20210717
  Serious: Yes (Other)
  Sender: FDA-Public Use
  Company Number: CA-TAKEDA-2015TUS010961

PATIENT
  Age: 50 Year
  Sex: Female
  Weight: 61.7 kg

DRUGS (13)
  1. ATIVAN [Concomitant]
     Active Substance: LORAZEPAM
     Dosage: UNK, QD
     Route: 065
  2. SYNTHROID [Concomitant]
     Active Substance: LEVOTHYROXINE SODIUM
     Dosage: UNK
  3. VEDOLIZUMAB [Suspect]
     Active Substance: VEDOLIZUMAB
     Indication: CROHN^S DISEASE
     Dosage: 300 MILLIGRAM
     Route: 042
     Dates: start: 20150814, end: 20151120
  4. IMOVANE [Concomitant]
     Active Substance: ZOPICLONE
     Dosage: 5 MILLIGRAM, QD
     Route: 065
  5. CALCIUM [Concomitant]
     Active Substance: CALCIUM
     Dosage: UNK
  6. DIPHENHYDRAMINE. [Concomitant]
     Active Substance: DIPHENHYDRAMINE
     Indication: PREMEDICATION
     Dosage: 50 MILLIGRAM
     Route: 048
     Dates: start: 20150814
  7. ACETAMINOPHEN. [Concomitant]
     Active Substance: ACETAMINOPHEN
     Indication: PROPHYLAXIS
     Dosage: 650 MILLIGRAM
     Route: 048
  8. VEDOLIZUMAB [Suspect]
     Active Substance: VEDOLIZUMAB
     Indication: COLITIS ULCERATIVE
  9. CORTISONE [Concomitant]
     Active Substance: CORTISONE
     Dosage: UNK
  10. METHOTREXATE SODIUM. [Suspect]
     Active Substance: METHOTREXATE SODIUM
     Indication: PRODUCT USED FOR UNKNOWN INDICATION
     Dosage: UNK
     Route: 065
  11. METHYLPREDNISOLONE. [Concomitant]
     Active Substance: METHYLPREDNISOLONE
     Indication: PREMEDICATION
     Dosage: 80 MILLIGRAM
     Route: 042
     Dates: start: 20150814
  12. MEZAVANT [Concomitant]
     Active Substance: MESALAMINE
     Dosage: UNK
  13. VITAMIN D NOS [Concomitant]
     Active Substance: VITAMIN D NOS
     Dosage: UNK

REACTIONS (14)
  - Renal pain [Unknown]
  - Asthenia [Unknown]
  - Decreased appetite [Unknown]
  - Abdominal pain [Not Recovered/Not Resolved]
  - Arthralgia [Unknown]
  - Weight decreased [Unknown]
  - Fatigue [Unknown]
  - Drug ineffective [Unknown]
  - Haematochezia [Not Recovered/Not Resolved]
  - Diarrhoea [Unknown]
  - Headache [Recovering/Resolving]
  - Amnesia [Unknown]
  - Off label use [Unknown]
  - Nausea [Not Recovered/Not Resolved]

NARRATIVE: CASE EVENT DATE: 2015
